FAERS Safety Report 4296281-8 (Version None)
Quarter: 2004Q1

REPORT INFORMATION
  Report Type: 
  Country: None (occurrence: None)
  Receive Date: 20040217
  Receipt Date: 20031006
  Transmission Date: 20041129
  Serious: No
  Sender: FDA-Public Use
  Company Number: US-GLAXOSMITHKLINE-A0428996A

PATIENT

DRUGS (2)
  1. LAMICTAL [Suspect]
  2. TOPAMAX [Concomitant]

REACTIONS (1)
  - MUSCLE TWITCHING [None]
